FAERS Safety Report 5105531-7 (Version None)
Quarter: 2006Q3

REPORT INFORMATION
  Report Type: 
  Country: None (occurrence: None)
  Receive Date: 20060915
  Receipt Date: 20060905
  Transmission Date: 20061208
  Serious: Yes (Death, Hospitalization)
  Sender: FDA-Public Use
  Company Number: US-JNJFOC-20060902709

PATIENT
  Age: 26 Year
  Sex: Female

DRUGS (8)
  1. ACETAMINOPHEN [Suspect]
     Route: 048
  2. ACETAMINOPHEN [Suspect]
     Indication: SUICIDE ATTEMPT
     Route: 048
  3. QUETIAPINE [Suspect]
     Indication: SUICIDE ATTEMPT
     Route: 048
  4. BUPROPION HCL [Suspect]
     Indication: SUICIDE ATTEMPT
     Route: 048
  5. VALPROIC ACID [Suspect]
     Indication: SUICIDE ATTEMPT
     Route: 048
  6. CITALOPRAM HYDROBROMIDE [Suspect]
     Indication: SUICIDE ATTEMPT
     Route: 048
  7. CLONAZEPAM [Suspect]
     Indication: SUICIDE ATTEMPT
     Route: 048
  8. ESTRADIOL INJ [Concomitant]
     Indication: SUICIDE ATTEMPT
     Route: 048

REACTIONS (5)
  - CARDIO-RESPIRATORY ARREST [None]
  - COMPLETED SUICIDE [None]
  - DRUG TOXICITY [None]
  - ELECTROCARDIOGRAM ABNORMAL [None]
  - LOSS OF CONSCIOUSNESS [None]
